FAERS Safety Report 8007060-X (Version None)
Quarter: 2011Q4

REPORT INFORMATION
  Report Type: 
  Country: None (occurrence: None)
  Receive Date: 20111227
  Receipt Date: 20111221
  Transmission Date: 20120403
  Serious: Yes (Other)
  Sender: FDA-Public Use
  Company Number: US-JNJFOC-20111209646

PATIENT
  Age: 78 Year
  Sex: Female
  Weight: 39.01 kg

DRUGS (5)
  1. VITAMIN C [Concomitant]
     Indication: VITAMIN SUPPLEMENTATION
     Dosage: YEARS AGO
     Route: 065
  2. VITAMIN B COMPLEX CAP [Concomitant]
     Indication: VITAMIN SUPPLEMENTATION
     Dosage: YEARS AGO
     Route: 065
  3. INDERAL [Concomitant]
     Indication: MIGRAINE PROPHYLAXIS
     Dosage: YEARS AGO
     Route: 065
  4. BENGAY VANISHING SCENT [Suspect]
     Indication: PAIN
     Dosage: A SMALL AMOUNT
     Route: 061
     Dates: start: 20111208, end: 20111208
  5. RELPAX [Concomitant]
     Indication: MIGRAINE
     Dosage: ONE YEAR AGO
     Route: 065
     Dates: start: 20100101

REACTIONS (1)
  - BURNS SECOND DEGREE [None]
